FAERS Safety Report 23755511 (Version 2)
Quarter: 2024Q2

REPORT INFORMATION
  Report Type: Spontaneous
  Country: US (occurrence: US)
  Receive Date: 20240418
  Receipt Date: 20240605
  Transmission Date: 20240715
  Serious: Yes (Hospitalization)
  Sender: FDA-Public Use
  Company Number: US-ENDO PHARMACEUTICALS INC-2024-001692

PATIENT
  Age: 9 Year
  Sex: Female

DRUGS (6)
  1. SUPPRELIN LA [Suspect]
     Active Substance: HISTRELIN ACETATE
     Indication: Pituitary gonadotropin hyperfunction
     Dosage: 50 MILLIGRAM, UNKNOWN
     Route: 058
     Dates: start: 20240322, end: 20240403
  2. SUPPRELIN LA [Suspect]
     Active Substance: HISTRELIN ACETATE
     Indication: Pituitary gonadotropin hyperfunction
     Dosage: 50 MILLIGRAM, UNKNOWN
     Route: 058
     Dates: start: 20240322, end: 20240403
  3. SUPPRELIN LA [Suspect]
     Active Substance: HISTRELIN ACETATE
     Indication: Pituitary gonadotropin hyperfunction
     Dosage: 50 MILLIGRAM, UNKNOWN
     Route: 058
     Dates: start: 20240322, end: 20240403
  4. SUPPRELIN LA [Suspect]
     Active Substance: HISTRELIN ACETATE
     Indication: Precocious puberty
     Dosage: 50 MILLIGRAM, UNKNOWN
     Route: 058
  5. SUPPRELIN LA [Suspect]
     Active Substance: HISTRELIN ACETATE
     Indication: Precocious puberty
     Dosage: 50 MILLIGRAM, UNKNOWN
     Route: 058
  6. SUPPRELIN LA [Suspect]
     Active Substance: HISTRELIN ACETATE
     Indication: Precocious puberty
     Dosage: 50 MILLIGRAM, UNKNOWN
     Route: 058

REACTIONS (2)
  - Implant site abscess [Unknown]
  - Expulsion of medication [Recovered/Resolved]

NARRATIVE: CASE EVENT DATE: 20240403
